FAERS Safety Report 8197190-4 (Version None)
Quarter: 2012Q1

REPORT INFORMATION
  Report Type: 
  Country: None (occurrence: None)
  Receive Date: 20120309
  Receipt Date: 20120306
  Transmission Date: 20120608
  Serious: Yes (Death)
  Sender: FDA-Public Use
  Company Number: JP-PFIZER INC-2012044099

PATIENT
  Age: 77 Year
  Sex: Male
  Weight: 40.3 kg

DRUGS (13)
  1. PROMETHAZINE HCL [Concomitant]
     Dosage: UNK
     Route: 042
     Dates: start: 20111010, end: 20111010
  2. ISOSORBIDE DINITRATE [Concomitant]
     Dosage: UNK
     Route: 042
     Dates: start: 20111004, end: 20111012
  3. SILDENAFIL CITRATE [Suspect]
     Indication: CHRONIC OBSTRUCTIVE PULMONARY DISEASE
     Dosage: 20 MG, 3X/DAY
     Route: 048
     Dates: start: 20110824, end: 20110925
  4. ATARAX [Concomitant]
     Dosage: UNK
     Route: 042
     Dates: start: 20110927, end: 20111011
  5. HANP [Concomitant]
     Dosage: UNK
     Route: 042
     Dates: start: 20111004, end: 20111012
  6. ALINAMIN F [Concomitant]
     Indication: HYPOVITAMINOSIS
     Dosage: UNK
     Route: 042
     Dates: end: 20111012
  7. ASCORBIC ACID [Concomitant]
     Indication: HYPOVITAMINOSIS
     Dosage: UNK
     Route: 042
     Dates: start: 20110927, end: 20111012
  8. BISOLVON [Concomitant]
     Dosage: UNK
     Route: 042
     Dates: start: 20110927, end: 20111011
  9. GRANISETRON [Concomitant]
     Dosage: UNK
     Route: 042
     Dates: start: 20110830, end: 20110920
  10. VINORELBINE DITARTRATE [Concomitant]
     Dosage: UNK
     Route: 042
     Dates: start: 20110830, end: 20110920
  11. ZANTAC [Concomitant]
     Indication: GASTRIC ULCER
     Dosage: UNK
     Route: 042
     Dates: start: 20110927, end: 20111011
  12. ZOSYN [Concomitant]
     Dosage: UNK
     Route: 042
     Dates: start: 20110923, end: 20111011
  13. VITAMEDIN INTRAVENOUS [Concomitant]
     Indication: HYPOVITAMINOSIS
     Dosage: UNK
     Route: 042
     Dates: start: 20110927, end: 20111012

REACTIONS (2)
  - LUNG NEOPLASM MALIGNANT [None]
  - DISEASE PROGRESSION [None]
